FAERS Safety Report 4457432-5 (Version None)
Quarter: 2004Q3

REPORT INFORMATION
  Report Type: 
  Country: None (occurrence: None)
  Receive Date: 20040901
  Receipt Date: 20040712
  Transmission Date: 20050211
  Serious: Yes (Hospitalization)
  Sender: FDA-Public Use
  Company Number: 139518USA

PATIENT
  Age: 58 Year
  Sex: Male
  Weight: 104.3273 kg

DRUGS (2)
  1. FOSINOPRIL [Suspect]
     Indication: HYPERTENSION
     Dosage: 40 MILLIGRAM QD ORAL
     Route: 048
     Dates: start: 20040101, end: 20040101
  2. ATENOLOL [Concomitant]

REACTIONS (3)
  - BRADYCARDIA [None]
  - CARDIAC ARREST [None]
  - LOSS OF CONSCIOUSNESS [None]
